FAERS Safety Report 12498744 (Version 1)
Quarter: 2016Q2

REPORT INFORMATION
  Report Type: Spontaneous
  Country: US (occurrence: None)
  Receive Date: 20160624
  Receipt Date: 20160624
  Transmission Date: 20160815
  Serious: Yes (Other)
  Sender: FDA-Public Use
  Company Number: None

PATIENT
  Age: 54 Year
  Sex: Male
  Weight: 156.49 kg

DRUGS (1)
  1. LEVETIRACETAM 500MG [Suspect]
     Active Substance: LEVETIRACETAM
     Indication: SEIZURE
     Route: 048
     Dates: start: 20160612, end: 20160619

REACTIONS (5)
  - Muscular weakness [None]
  - Speech disorder [None]
  - Dyspnoea [None]
  - Peripheral swelling [None]
  - Gait disturbance [None]

NARRATIVE: CASE EVENT DATE: 20160619
